FAERS Safety Report 14881107 (Version 2)
Quarter: 2018Q2

REPORT INFORMATION
  Report Type: Spontaneous
  Country: US (occurrence: US)
  Receive Date: 20180511
  Receipt Date: 20180515
  Transmission Date: 20180711
  Serious: No
  Sender: FDA-Public Use
  Company Number: US-PFIZER INC-2018190050

PATIENT
  Age: 61 Year
  Sex: Female

DRUGS (2)
  1. IBRANCE [Suspect]
     Active Substance: PALBOCICLIB
     Dosage: 125 MG, UNK
  2. IBRANCE [Suspect]
     Active Substance: PALBOCICLIB
     Dosage: 100 MG, UNK

REACTIONS (8)
  - Lip pain [Unknown]
  - Dysgeusia [Unknown]
  - Oral discomfort [Unknown]
  - Hypoacusis [Unknown]
  - Eye disorder [Unknown]
  - Alopecia [Unknown]
  - Nausea [Unknown]
  - Lip discolouration [Unknown]
